FAERS Safety Report 15423492 (Version 1)
Quarter: 2018Q3

REPORT INFORMATION
  Report Type: Spontaneous
  Country: US (occurrence: US)
  Receive Date: 20180918
  Receipt Date: 20180918
  Transmission Date: 20181010
  Serious: Yes (Death)
  Sender: FDA-Public Use
  Company Number: None

PATIENT
  Age: 57 Year
  Sex: Male
  Weight: 74.84 kg

DRUGS (3)
  1. PROCRIT/ZARXIO IDELVION [Concomitant]
  2. TRUVADA [Concomitant]
     Active Substance: EMTRICITABINE\TENOFOVIR DISOPROXIL FUMARATE
  3. ISENTRESS [Suspect]
     Active Substance: RALTEGRAVIR POTASSIUM
     Indication: HIV INFECTION
     Route: 048
     Dates: start: 2017, end: 20180914

REACTIONS (6)
  - Renal failure [None]
  - Liver transplant [None]
  - Seizure [None]
  - Dialysis [None]
  - Central nervous system infection [None]
  - Cardiac disorder [None]

NARRATIVE: CASE EVENT DATE: 20180914
